FAERS Safety Report 9415429 (Version 1)
Quarter: 2013Q3

REPORT INFORMATION
  Report Type: Spontaneous
  Country: PR (occurrence: PR)
  Receive Date: 20130723
  Receipt Date: 20130723
  Transmission Date: 20140515
  Serious: No
  Sender: FDA-Public Use
  Company Number: PR-BAXTER-2013BAX026836

PATIENT
  Sex: 0

DRUGS (1)
  1. PREMASOL 6% [Suspect]
     Indication: PARENTERAL NUTRITION

REACTIONS (2)
  - Wrong drug administered [Unknown]
  - No adverse event [Recovered/Resolved]
